FAERS Safety Report 23745728 (Version 1)
Quarter: 2024Q2

REPORT INFORMATION
  Report Type: Spontaneous
  Country: IT (occurrence: IT)
  Receive Date: 20240416
  Receipt Date: 20240416
  Transmission Date: 20240716
  Serious: Yes (Hospitalization, Other)
  Sender: FDA-Public Use
  Company Number: IT-HALEON-ITCH2024HLN016188

PATIENT
  Age: 18 Year
  Sex: Female

DRUGS (3)
  1. ACETAMINOPHEN [Suspect]
     Active Substance: ACETAMINOPHEN
     Indication: Pyrexia
     Dosage: VOLUNTARY INTAKE FOR SELF-HARMING PURPOSES OF IS TABLETS OF PARACETAMOL 500 MG (ABUSE OF?DRUG). T...
     Route: 048
     Dates: start: 20230626, end: 20230626
  2. FLUOXETINE [Concomitant]
     Active Substance: FLUOXETINE HYDROCHLORIDE
     Indication: Product used for unknown indication
     Dosage: THE DOSAGE OF FLUOXETINE TAKEN, THE DOSAGE, THE PHARMACEUTICAL FORM AND THE DOSAGE ARE NOT KNOWN?...
  3. ARIPIPRAZOLE [Concomitant]
     Active Substance: ARIPIPRAZOLE
     Indication: Product used for unknown indication
     Dosage: I DO NOT KNOW THE DOSAGE OF ABILIFY TAKEN, THE DOSAGE, THE PHARMACEUTICAL FORM AND THE?METHOD OF ...

REACTIONS (2)
  - Drug abuse [Recovering/Resolving]
  - Tachycardia [Recovering/Resolving]

NARRATIVE: CASE EVENT DATE: 20230626
